FAERS Safety Report 9221900 (Version 3)
Quarter: 2013Q3

REPORT INFORMATION
  Report Type: Spontaneous
  Country: US (occurrence: None)
  Receive Date: 20120907
  Receipt Date: 20130815
  Transmission Date: 20140515
  Serious: Yes (Other)
  Sender: FDA-Public Use
  Company Number: ADR-2012-01642

PATIENT
  Sex: Female

DRUGS (2)
  1. BACLOFEN INTRATHECAL (BACLOFEN INJECTION) [Suspect]
     Indication: MUSCLE SPASTICITY
  2. BACLOFEN INTRATHECAL (BACLOFEN INJECTION) [Suspect]
     Indication: SPINAL CORD INJURY

REACTIONS (8)
  - Feeling abnormal [None]
  - Sensation of heaviness [None]
  - Somnolence [None]
  - Hypoaesthesia oral [None]
  - Pain [None]
  - Hypoaesthesia oral [None]
  - Somnolence [None]
  - Malaise [None]
